FAERS Safety Report 14707257 (Version 3)
Quarter: 2018Q3

REPORT INFORMATION
  Report Type: Spontaneous
  Country: DE (occurrence: DE)
  Receive Date: 20180403
  Receipt Date: 20180709
  Transmission Date: 20181010
  Serious: Yes (Death)
  Sender: FDA-Public Use
  Company Number: DE-ROCHE-2100393

PATIENT
  Age: 60 Year
  Sex: Female
  Weight: 70 kg

DRUGS (3)
  1. MABTHERA [Suspect]
     Active Substance: RITUXIMAB
     Indication: RHEUMATOID ARTHRITIS
     Dosage: LAST DOSE ON 03/JAN/2018
     Route: 042
     Dates: start: 201302
  2. PREDNISOLONE. [Suspect]
     Active Substance: PREDNISOLONE
     Indication: RHEUMATOID ARTHRITIS
     Dosage: LAST DOSE IN JAN/2018
     Route: 048
     Dates: start: 200909
  3. METEX (GERMANY) [Suspect]
     Active Substance: METHOTREXATE SODIUM
     Indication: RHEUMATOID ARTHRITIS
     Dosage: DAILY DOSE: 15 MG MILLGRAM(S) EVERY 14 DAYS?LAST DOSE IN JAN/2018
     Route: 058
     Dates: start: 200902

REACTIONS (1)
  - Myocardial infarction [Fatal]

NARRATIVE: CASE EVENT DATE: 20180214
